FAERS Safety Report 4360098-6 (Version None)
Quarter: 2004Q2

REPORT INFORMATION
  Report Type: 
  Country: None (occurrence: None)
  Receive Date: 20040513
  Receipt Date: 20040430
  Transmission Date: 20050107
  Serious: Yes (Life-Threatening)
  Sender: FDA-Public Use
  Company Number: GBWYE741805MAY04

PATIENT
  Age: 84 Year
  Sex: Male

DRUGS (5)
  1. DEMECLOCYCLINE HCL [Suspect]
     Indication: HYPONATRAEMIA
     Dosage: 300 MG 3 X PER 1 DAY, ORAL
     Route: 048
     Dates: start: 20040101, end: 20040408
  2. FUROSEMIDE [Concomitant]
  3. AMLODIPINE [Concomitant]
  4. LISINOPRIL [Concomitant]
  5. ASPIRIN (ACETYLSALICULIC ACID) [Concomitant]

REACTIONS (1)
  - RENAL IMPAIRMENT [None]
